FAERS Safety Report 15821511 (Version 1)
Quarter: 2019Q1

REPORT INFORMATION
  Report Type: Spontaneous
  Country: SE (occurrence: SE)
  Receive Date: 20190114
  Receipt Date: 20190114
  Transmission Date: 20190417
  Serious: Yes (Other)
  Sender: FDA-Public Use
  Company Number: SE-PFIZER INC-2019013376

PATIENT
  Age: 66 Year
  Sex: Female

DRUGS (1)
  1. MERONEM [Suspect]
     Active Substance: MEROPENEM
     Dosage: UNK

REACTIONS (1)
  - Toxic skin eruption [Recovering/Resolving]

NARRATIVE: CASE EVENT DATE: 2018
